FAERS Safety Report 6335544-9 (Version None)
Quarter: 2009Q3

REPORT INFORMATION
  Report Type: 
  Country: None (occurrence: None)
  Receive Date: 20090827
  Receipt Date: 20090818
  Transmission Date: 20100115
  Serious: Yes (Death)
  Sender: FDA-Public Use
  Company Number: 360296

PATIENT
  Sex: Female

DRUGS (17)
  1. ETOPOSIDE [Suspect]
     Indication: GERM CELL CANCER
     Dosage: 200 MG, INTRAVENOUS
     Route: 042
     Dates: start: 20050816
  2. CISPLATIN [Suspect]
     Indication: GERM CELL CANCER
     Dosage: 94 MG, INTRAVENOUS
     Route: 042
     Dates: start: 20050816
  3. BLEOMYCIN) [Suspect]
     Indication: GERM CELL CANCER
     Dosage: 3000 DOSAGE FORM, INTRAVENOUS
     Route: 042
     Dates: start: 20050816
  4. APREPITANT [Concomitant]
  5. CO-CODAMOL [Concomitant]
  6. DESMOPRESSIN ACETATE [Concomitant]
  7. DOMERIDONE [Concomitant]
  8. GRANISETRON HCL [Concomitant]
  9. HYDROCORTISONE [Concomitant]
  10. LEVOTHYROXINE SODIUM [Concomitant]
  11. LORAZEPAM [Concomitant]
  12. LYRICA [Concomitant]
  13. METOCLOPRAMIDE [Concomitant]
  14. NULYTELY [Concomitant]
  15. ORAMORPH SR [Concomitant]
  16. RANITIDINE [Concomitant]
  17. WARFARIN SODIUM [Concomitant]

REACTIONS (7)
  - DISEASE PROGRESSION [None]
  - GERM CELL CANCER [None]
  - HEADACHE [None]
  - NEUTROPENIC SEPSIS [None]
  - PNEUMONIA [None]
  - SOMNOLENCE [None]
  - TERATOMA [None]
